FAERS Safety Report 6196323-9 (Version None)
Quarter: 2009Q2

REPORT INFORMATION
  Report Type: 
  Country: None (occurrence: None)
  Receive Date: 20090518
  Receipt Date: 20090506
  Transmission Date: 20091009
  Serious: Yes (Death)
  Sender: FDA-Public Use
  Company Number: 1000005098

PATIENT
  Age: 52 Year
  Sex: Female
  Weight: 77 kg

DRUGS (5)
  1. ESCITALOPRAM [Suspect]
     Dosage: (20 MG) ; (20 MG)
  2. AMITRIPTYLINE HCL [Suspect]
     Dosage: (25 MG)
  3. TYLENOL W/ CODEINE [Suspect]
  4. DIAZEPAM [Concomitant]
  5. SEROQUEL [Concomitant]

REACTIONS (1)
  - MULTIPLE DRUG OVERDOSE ACCIDENTAL [None]
